FAERS Safety Report 8719341 (Version 2)
Quarter: 2012Q4

REPORT INFORMATION
  Report Type: 
  Country: US (occurrence: US)
  Receive Date: 20120813
  Receipt Date: 20120926
  Transmission Date: 20130627
  Serious: No
  Sender: FDA-Public Use
  Company Number: US-PFIZER INC-2012191943

PATIENT
  Age: 46 Year
  Sex: Female

DRUGS (13)
  1. LYRICA [Suspect]
     Dosage: UNK
  2. REGLAN [Concomitant]
     Dosage: 5 mg, 2x/day
  3. SEROQUEL [Concomitant]
     Dosage: UNK, 100 QHS
  4. ALLEGRA [Concomitant]
     Dosage: UNK, 180 QD
  5. ZOVIRAX [Concomitant]
     Dosage: UNK, 200 QD
  6. IRON [Concomitant]
     Dosage: UNK, 65 QD
  7. BUSPAR [Concomitant]
     Dosage: 5 mg, 2x/day
  8. AMBIEN [Concomitant]
     Dosage: UNK, 10 HS, PRN
  9. PROZAC [Concomitant]
     Dosage: UNK, 40 QD
  10. FLONASE [Concomitant]
     Dosage: UNK
  11. SUPER VITAMIN B COMPLEX [Concomitant]
     Dosage: UNK
  12. OXYCODONE [Concomitant]
     Dosage: 10 Q 60
  13. LISINOPRIL [Concomitant]
     Dosage: UNK, 40 BID

REACTIONS (6)
  - Gastrooesophageal reflux disease [Unknown]
  - Hypoaesthesia [Unknown]
  - Weight increased [Unknown]
  - Paraesthesia [Unknown]
  - Hyponatraemia [Unknown]
  - Pain [Unknown]
